FAERS Safety Report 19803059 (Version 1)
Quarter: 2021Q3

REPORT INFORMATION
  Report Type: Spontaneous
  Country: BR (occurrence: BR)
  Receive Date: 20210908
  Receipt Date: 20210908
  Transmission Date: 20211014
  Serious: Yes (Other)
  Sender: FDA-Public Use
  Company Number: BR-ABBVIE-21K-020-4069677-00

PATIENT
  Sex: Female
  Weight: 90 kg

DRUGS (2)
  1. HUMIRA [Suspect]
     Active Substance: ADALIMUMAB
     Indication: STILL^S DISEASE
     Route: 058
     Dates: start: 2018, end: 2019
  2. HUMIRA [Suspect]
     Active Substance: ADALIMUMAB
     Indication: STILL^S DISEASE
     Route: 058
     Dates: start: 201910

REACTIONS (5)
  - Viral infection [Unknown]
  - Injection site discolouration [Recovered/Resolved]
  - Drug-induced liver injury [Unknown]
  - Drug hypersensitivity [Recovered/Resolved]
  - Injection site swelling [Recovered/Resolved]
